FAERS Safety Report 25182815 (Version 1)
Quarter: 2025Q2

REPORT INFORMATION
  Report Type: Spontaneous
  Country: AU (occurrence: AU)
  Receive Date: 20250410
  Receipt Date: 20250410
  Transmission Date: 20250716
  Serious: Yes (Other)
  Sender: ROCHE
  Company Number: AU-ROCHE-10000246892

PATIENT
  Age: 70 Year

DRUGS (1)
  1. OCREVUS [Suspect]
     Active Substance: OCRELIZUMAB
     Indication: Multiple sclerosis
     Route: 065

REACTIONS (3)
  - Hypogammaglobulinaemia [Unknown]
  - Hepatorenal failure [Unknown]
  - Infection [Unknown]
